FAERS Safety Report 9144169 (Version 1)
Quarter: 2013Q1

REPORT INFORMATION
  Report Type: Spontaneous
  Country: US (occurrence: US)
  Receive Date: 20130306
  Receipt Date: 20130306
  Transmission Date: 20140127
  Serious: Yes (Other)
  Sender: FDA-Public Use
  Company Number: US-ASTRAZENECA-2013SE12816

PATIENT
  Age: 79 Year
  Sex: Female
  Weight: 99.8 kg

DRUGS (10)
  1. OMEPRAZOLE [Suspect]
     Indication: GASTROOESOPHAGEAL REFLUX DISEASE
     Route: 048
  2. LISINOPRIL [Suspect]
     Indication: DIURETIC THERAPY
     Route: 048
  3. ARIMIDEX [Suspect]
     Indication: BREAST CANCER STAGE I
     Dosage: QAM, GENERIC
     Route: 048
     Dates: start: 201208
  4. COLACE [Concomitant]
  5. ALEVE [Concomitant]
  6. CALCIUM [Concomitant]
  7. VIT D [Concomitant]
  8. GEMFIBROZIL [Concomitant]
     Indication: BLOOD CHOLESTEROL INCREASED
  9. XANAX [Concomitant]
  10. BAYER ASPIRIN [Concomitant]
     Dosage: DAILY

REACTIONS (3)
  - Breast cancer stage I [Unknown]
  - Myocardial infarction [Unknown]
  - Joint lock [Unknown]
